FAERS Safety Report 7624679-6 (Version None)
Quarter: 2011Q3

REPORT INFORMATION
  Report Type: 
  Country: None (occurrence: None)
  Receive Date: 20110720
  Receipt Date: 20110718
  Transmission Date: 20111222
  Serious: No
  Sender: FDA-Public Use
  Company Number: US-B.I. PHARMACEUTICALS,INC./RIDGEFIELD-2011-BP-17825BP

PATIENT
  Sex: Female

DRUGS (13)
  1. DIGOXIN [Concomitant]
     Indication: ATRIAL FIBRILLATION
     Dosage: 0.0125 MG
     Route: 048
     Dates: start: 20080101
  2. ZOCOR [Concomitant]
     Indication: BLOOD CHOLESTEROL INCREASED
     Dosage: 40 MG
     Route: 048
     Dates: start: 20030101
  3. DILTIAZEM [Concomitant]
     Indication: HYPERTENSION
     Dosage: 180 MG
     Route: 048
     Dates: start: 20070101
  4. CELEBREX [Concomitant]
     Indication: ARTHRITIS
     Dosage: 100 MG
     Route: 048
     Dates: start: 19900101
  5. ZIAC [Concomitant]
     Indication: HYPERTENSION
     Route: 048
     Dates: start: 20070101
  6. CLONAZEPAM [Concomitant]
     Indication: INSOMNIA
     Dates: start: 20020101
  7. PRADAXA [Suspect]
     Indication: ATRIAL FIBRILLATION
     Dosage: 300 MG
     Route: 048
     Dates: start: 20110401, end: 20110701
  8. PREVACID [Concomitant]
     Indication: GASTROOESOPHAGEAL REFLUX DISEASE
     Dosage: 30 MG
     Route: 048
     Dates: start: 20080101
  9. ACYCLOVIR [Concomitant]
     Indication: HERPES VIRUS INFECTION
     Dosage: 800 MG
     Route: 048
     Dates: start: 19820101
  10. LEVOTHYROXINE SODIUM [Concomitant]
     Indication: HYPOTHYROIDISM
     Dosage: 88 MCG
     Route: 048
     Dates: start: 19900101
  11. PROMETRIUM [Concomitant]
     Indication: MENOPAUSE
     Dosage: 100 MG
     Route: 048
     Dates: start: 20030101
  12. EEMT [Concomitant]
     Indication: MENOPAUSE
     Route: 048
     Dates: start: 20090101
  13. SKELAXIN [Concomitant]
     Indication: BACK PAIN
     Dates: start: 20080101

REACTIONS (2)
  - DYSPEPSIA [None]
  - ERUCTATION [None]
